FAERS Safety Report 8511430-0 (Version None)
Quarter: 2012Q2

REPORT INFORMATION
  Report Type: 
  Country: None (occurrence: None)
  Receive Date: 20120406
  Receipt Date: 20100625
  Transmission Date: 20120825
  Serious: Yes (Life-Threatening, Hospitalization)
  Sender: FDA-Public Use
  Company Number: PHEH2010US02643

PATIENT
  Age: 73 Year
  Sex: Female
  Weight: 100 kg

DRUGS (18)
  1. MAG (MAGNESIUM PIDOLATE) [Concomitant]
  2. SYSTANE (PROPYLENE GLYCOL/MACROGOL) (MACROGOL, PROPYLENE GLYCOL) [Concomitant]
  3. TASIGNA [Suspect]
     Indication: ACUTE MYELOID LEUKAEMIA (IN REMISSION)
     Dosage: 400 MG, BID, ORAL
     Route: 048
     Dates: start: 20100206, end: 20100210
  4. POTASSIUM CHLORIDE [Concomitant]
  5. LEVOXYL [Concomitant]
  6. ZOVIRAX [Concomitant]
  7. COUMADIN [Concomitant]
  8. PROTONIX [Concomitant]
  9. DIOVAN [Concomitant]
  10. LOPRESSOR [Concomitant]
  11. SOMA [Concomitant]
  12. DARVOCET-N (DEXTROPROPOXYPHENE NAPSILATE, PARACETAMOL) [Concomitant]
  13. SENNA (SENNA, SENNA ALEXANDRINA) [Concomitant]
  14. COMPAZINE [Concomitant]
  15. EVISTA [Concomitant]
  16. BUMEX [Concomitant]
  17. REGLAN [Concomitant]
  18. GLEEVEC [Concomitant]

REACTIONS (5)
  - ATRIAL FIBRILLATION [None]
  - DYSPNOEA [None]
  - CHEST PAIN [None]
  - URINARY TRACT INFECTION [None]
  - PYREXIA [None]
